FAERS Safety Report 12629977 (Version 1)
Quarter: 2016Q3

REPORT INFORMATION
  Report Type: Spontaneous
  Country: FR (occurrence: FR)
  Receive Date: 20160808
  Receipt Date: 20160808
  Transmission Date: 20161109
  Serious: Yes (Hospitalization)
  Sender: FDA-Public Use
  Company Number: FR-PFIZER INC-2016369615

PATIENT
  Age: 66 Year
  Sex: Male

DRUGS (12)
  1. TAVANIC [Concomitant]
     Active Substance: LEVOFLOXACIN
     Dosage: 500 MG, UNK
  2. BRICANYL [Concomitant]
     Active Substance: TERBUTALINE SULFATE
  3. LASILIX /00032601/ [Concomitant]
     Active Substance: FUROSEMIDE
  4. VFEND [Suspect]
     Active Substance: VORICONAZOLE
     Indication: BRONCHOPULMONARY ASPERGILLOSIS
     Dosage: 300 MG, 2X/DAY
     Dates: start: 20140516, end: 20140616
  5. ZARZIO [Concomitant]
     Active Substance: FILGRASTIM
  6. TIAPRIDAL [Concomitant]
     Active Substance: TIAPRIDE HYDROCHLORIDE
  7. ATROVENT [Concomitant]
     Active Substance: IPRATROPIUM BROMIDE
  8. INEXIUM /01479302/ [Concomitant]
     Active Substance: ESOMEPRAZOLE MAGNESIUM
  9. VANCOMYCIN [Concomitant]
     Active Substance: VANCOMYCIN
  10. VITAMIN K [Concomitant]
     Active Substance: PHYTONADIONE
  11. SPASFON /00765801/ [Concomitant]
     Active Substance: PHLOROGLUCINOL\1,3,5-TRIMETHOXYBENZENE
  12. TAZOCILLINE [Concomitant]
     Active Substance: PIPERACILLIN SODIUM\TAZOBACTAM SODIUM
     Dosage: 4G/500 MG

REACTIONS (1)
  - Confusional state [Recovered/Resolved]

NARRATIVE: CASE EVENT DATE: 20140617
